FAERS Safety Report 8493566 (Version 2)
Quarter: 2013Q1

REPORT INFORMATION
  Report Type: Spontaneous
  Country: DK (occurrence: None)
  Receive Date: 20120326
  Receipt Date: 20121025
  Transmission Date: 20140127
  Serious: Yes (Other)
  Sender: FDA-Public Use
  Company Number: 2012MA003798

PATIENT
  Age: 23 Year
  Sex: Male

DRUGS (3)
  1. GABAPENTIN [Suspect]
     Indication: NEURALGIA
     Route: 048
     Dates: start: 20120227, end: 20120229
  2. VALPROIC ACID [Concomitant]
  3. TRAMADOL HYDROCHLORIDE [Concomitant]

REACTIONS (1)
  - VIIth nerve paralysis [None]
